FAERS Safety Report 9460448 (Version 4)
Quarter: 2013Q4

REPORT INFORMATION
  Report Type: Report from Study
  Country: US (occurrence: US)
  Receive Date: 20130815
  Receipt Date: 20131202
  Transmission Date: 20140711
  Serious: Yes (Hospitalization, Disabling, Other)
  Sender: FDA-Public Use
  Company Number: US-ACTELION-A-US2013-86908

PATIENT
  Age: 65 Year
  Sex: Female

DRUGS (20)
  1. TRACLEER [Suspect]
     Indication: PULMONARY ARTERIAL HYPERTENSION
     Dosage: 125 MG, BID
     Route: 048
     Dates: start: 201212
  2. ACETAMINOPHEN [Concomitant]
     Dosage: 650 MG, TID
     Route: 048
  3. ASPIRIN [Concomitant]
     Dosage: 81 MG, QD
     Route: 048
  4. BENZONATATE [Concomitant]
     Dosage: 100 MG, TID
     Route: 048
  5. CHOLECALCIFEROL [Concomitant]
     Dosage: 10000 U, QD
     Route: 048
  6. CULTURELLE [Concomitant]
     Dosage: 200 MG, BID
     Route: 048
  7. IPRATROPIUM BROMIDE/ALBUTEROL SULFATE [Concomitant]
     Dosage: 2 PUFF, Q4HRS
  8. LANTUS [Concomitant]
     Dosage: 60 U, QPM
     Route: 058
  9. MAALOX [Concomitant]
     Dosage: 1 TAB, QD
     Route: 048
  10. METFORMIN [Concomitant]
     Dosage: 1000 MG, QD
     Route: 048
  11. METOPROLOL [Concomitant]
     Dosage: 200 MG, UNK
     Route: 048
     Dates: start: 20120814
  12. MULTIPLE VITAMINS [Concomitant]
     Dosage: 1 UNK, QD
     Route: 048
  13. NIFEDICAL [Concomitant]
     Dosage: 60 MG, QD
     Route: 048
  14. ONDANSETRON [Concomitant]
     Dosage: 4 MG, Q6HRS
     Route: 048
  15. PROCARDIA [Concomitant]
     Dosage: 30 MG, QD
     Route: 048
  16. PSYLLIUM [Concomitant]
     Dosage: 1 SCOOP, QD
     Route: 048
  17. RISPERDAL [Concomitant]
     Dosage: 0.5 MG, BID
     Route: 048
  18. SIMVASTATIN [Concomitant]
     Dosage: 20 MG, QPM
     Dates: start: 20121001
  19. TEMAZEPAM [Concomitant]
     Dosage: 30 MG, QPM
     Route: 048
  20. TEMAZEPAM [Concomitant]
     Dosage: 30 MG, BID PRN
     Route: 048
     Dates: start: 20131023

REACTIONS (4)
  - Oesophageal adenocarcinoma [Not Recovered/Not Resolved]
  - Pulmonary mass [Recovering/Resolving]
  - Radiotherapy [Unknown]
  - Drug dose omission [Recovered/Resolved]
